FAERS Safety Report 4763875-2 (Version None)
Quarter: 2005Q3

REPORT INFORMATION
  Report Type: 
  Country: None (occurrence: None)
  Receive Date: 20050906
  Receipt Date: 20050823
  Transmission Date: 20060218
  Serious: Yes (Other)
  Sender: FDA-Public Use
  Company Number: 2005119477

PATIENT
  Sex: Male
  Weight: 106.5953 kg

DRUGS (5)
  1. DETROL LA [Suspect]
     Indication: POLLAKIURIA
     Dosage: 4 MG (4 MG), ORAL
     Route: 048
  2. DETROL [Suspect]
     Indication: POLLAKIURIA
     Dosage: 4 MG (2 MG, BID), ORAL
     Route: 048
  3. AVANDIA [Concomitant]
  4. TENORMIN [Concomitant]
  5. ASPIRIN [Concomitant]

REACTIONS (7)
  - BLADDER SPASM [None]
  - DRUG EFFECT DECREASED [None]
  - DRY MOUTH [None]
  - ERECTILE DYSFUNCTION [None]
  - POST PROCEDURAL COMPLICATION [None]
  - SLEEP DISORDER [None]
  - VISION BLURRED [None]
